FAERS Safety Report 9910317 (Version 1)
Quarter: 2014Q1

REPORT INFORMATION
  Report Type: Spontaneous
  Country: CH (occurrence: CH)
  Receive Date: 20140219
  Receipt Date: 20140219
  Transmission Date: 20141002
  Serious: Yes (Other)
  Sender: FDA-Public Use
  Company Number: CH-BAYER-2014-022176

PATIENT
  Sex: Female

DRUGS (1)
  1. BETAFERON [Suspect]
     Dosage: UNK
     Route: 058
     Dates: start: 20131210

REACTIONS (8)
  - Multiple sclerosis [None]
  - Visual impairment [None]
  - Dizziness [None]
  - Injection site pain [None]
  - Injection site erythema [None]
  - Injection site induration [None]
  - Injection site pruritus [None]
  - Influenza like illness [None]
